FAERS Safety Report 6981719-5 (Version None)
Quarter: 2010Q3

REPORT INFORMATION
  Report Type: 
  Country: None (occurrence: None)
  Receive Date: 20100914
  Receipt Date: 20091022
  Transmission Date: 20110219
  Serious: No
  Sender: FDA-Public Use
  Company Number: US-PFIZER INC-2009261768

PATIENT
  Sex: Male
  Weight: 71.7 kg

DRUGS (5)
  1. LYRICA [Suspect]
     Indication: FIBROMYALGIA
     Dosage: 150 MG, 2X/DAY
     Dates: start: 20050101
  2. ADALAT [Concomitant]
     Dosage: UNK
  3. KLONOPIN [Concomitant]
     Dosage: UNK
  4. METHADONE [Concomitant]
     Dosage: UNK
  5. INSULIN [Concomitant]
     Dosage: UNK

REACTIONS (1)
  - BLISTER [None]
